FAERS Safety Report 18800932 (Version 2)
Quarter: 2021Q1

REPORT INFORMATION
  Report Type: Spontaneous
  Country: US (occurrence: US)
  Receive Date: 20210128
  Receipt Date: 20210202
  Transmission Date: 20210419
  Serious: Yes (Other)
  Sender: FDA-Public Use
  Company Number: US-TEVA-2021-US-1874395

PATIENT
  Sex: Male
  Weight: 86 kg

DRUGS (1)
  1. AUSTEDO [Suspect]
     Active Substance: DEUTETRABENAZINE
     Indication: HUNTINGTON^S DISEASE
     Dosage: 18 MILLIGRAM DAILY; TAKE 1 TABLET IN THE MORNING AND TAKE 2 TABLETS IN THE EVENING
     Route: 065
     Dates: start: 202007

REACTIONS (2)
  - Parkinson^s disease [Unknown]
  - Fall [Unknown]
